FAERS Safety Report 7706762-X (Version None)
Quarter: 2011Q3

REPORT INFORMATION
  Report Type: 
  Country: None (occurrence: None)
  Receive Date: 20110818
  Receipt Date: 20110803
  Transmission Date: 20111222
  Serious: No
  Sender: FDA-Public Use
  Company Number: 935713

PATIENT

DRUGS (1)
  1. MORPHINE SULFATE [Suspect]
     Indication: PRODUCT USED FOR UNKNOWN INDICATION
     Dosage: 30 MG MILLIGRAM(S), INTRAVENOUS (NOT OTHERWISE SPECIFIED)

REACTIONS (4)
  - PRODUCT LABEL CONFUSION [None]
  - SEDATION [None]
  - ACCIDENTAL OVERDOSE [None]
  - WRONG DRUG ADMINISTERED [None]
